FAERS Safety Report 8192440-2 (Version None)
Quarter: 2012Q1

REPORT INFORMATION
  Report Type: 
  Country: None (occurrence: None)
  Receive Date: 20120308
  Receipt Date: 20120305
  Transmission Date: 20120608
  Serious: No
  Sender: FDA-Public Use
  Company Number: US-BIOGENIDEC-2012BI003200

PATIENT
  Sex: Female

DRUGS (1)
  1. TYSABRI [Suspect]
     Indication: MULTIPLE SCLEROSIS
     Route: 042
     Dates: start: 20120119

REACTIONS (15)
  - THIRST [None]
  - VOMITING [None]
  - MICTURITION URGENCY [None]
  - FATIGUE [None]
  - INFLUENZA [None]
  - NAUSEA [None]
  - DYSPEPSIA [None]
  - INSOMNIA [None]
  - PYREXIA [None]
  - ORAL HERPES [None]
  - CHILLS [None]
  - DECREASED APPETITE [None]
  - APHAGIA [None]
  - MYALGIA [None]
  - ARTHRALGIA [None]
